FAERS Safety Report 8112380-4 (Version None)
Quarter: 2012Q1

REPORT INFORMATION
  Report Type: 
  Country: None (occurrence: None)
  Receive Date: 20120203
  Receipt Date: 20120127
  Transmission Date: 20120608
  Serious: No
  Sender: FDA-Public Use
  Company Number: US-B.I. PHARMACEUTICALS,INC./RIDGEFIELD-2012-BP-01753BP

PATIENT
  Sex: Female

DRUGS (7)
  1. TRIAMTERENE AND HYDROCHLOROTHIAZIDE [Concomitant]
     Indication: MENIERE'S DISEASE
  2. PRADAXA [Suspect]
     Indication: ATRIAL FIBRILLATION
     Dosage: 300 MG
     Route: 048
     Dates: start: 20111001
  3. ROPINIROLE HYDROCHLORIDE [Concomitant]
     Indication: RESTLESS LEGS SYNDROME
     Dosage: 1 MG
     Route: 048
  4. FLECAINIDE ACETATE [Concomitant]
     Indication: ATRIAL FIBRILLATION
     Route: 048
  5. CELEXA [Concomitant]
     Indication: DEPRESSION
  6. ESTRADIOL [Concomitant]
     Indication: HORMONE THERAPY
     Dosage: 1 MG
  7. LIPITOR [Concomitant]
     Indication: BLOOD CHOLESTEROL INCREASED
     Dosage: 40 MG
     Route: 048

REACTIONS (4)
  - INFLUENZA LIKE ILLNESS [None]
  - VOMITING [None]
  - NAUSEA [None]
  - DIZZINESS [None]
